FAERS Safety Report 6028978-3 (Version None)
Quarter: 2009Q1

REPORT INFORMATION
  Report Type: 
  Country: None (occurrence: None)
  Receive Date: 20090106
  Receipt Date: 20090102
  Transmission Date: 20090719
  Serious: Yes (Death, Other)
  Sender: FDA-Public Use
  Company Number: PHEH2008US09976

PATIENT
  Sex: Male
  Weight: 76 kg

DRUGS (4)
  1. TASIGNA [Suspect]
     Indication: BLAST CRISIS IN MYELOGENOUS LEUKAEMIA
     Dosage: 400 MG, BID
     Route: 048
     Dates: start: 20081103, end: 20081106
  2. DASATINIB [Suspect]
     Indication: BLAST CRISIS IN MYELOGENOUS LEUKAEMIA
     Dosage: 100 MG, QD
     Route: 048
     Dates: start: 20081016, end: 20081102
  3. GLEEVEC [Concomitant]
     Indication: CHRONIC MYELOID LEUKAEMIA
     Dosage: 400 MG, QD
     Route: 048
     Dates: start: 20080201, end: 20081012
  4. DECADRON [Concomitant]

REACTIONS (27)
  - ABDOMINAL PAIN LOWER [None]
  - ANURIA [None]
  - BACK PAIN [None]
  - BLOOD ALBUMIN DECREASED [None]
  - BLOOD CALCIUM DECREASED [None]
  - BLOOD CREATININE INCREASED [None]
  - BLOOD GLUCOSE INCREASED [None]
  - BLOOD PRESSURE DECREASED [None]
  - BLOOD UREA INCREASED [None]
  - CARDIAC ARREST [None]
  - CONSTIPATION [None]
  - ENDOTRACHEAL INTUBATION [None]
  - HAEMATOCRIT DECREASED [None]
  - HAEMOGLOBIN DECREASED [None]
  - LUNG INFILTRATION [None]
  - PLATELET COUNT DECREASED [None]
  - PNEUMONIA [None]
  - PROCTALGIA [None]
  - RECTAL HAEMORRHAGE [None]
  - RECTAL PERFORATION [None]
  - RED BLOOD CELL COUNT DECREASED [None]
  - RENAL CORTICAL NECROSIS [None]
  - RESPIRATORY FAILURE [None]
  - SCROTAL PAIN [None]
  - SUBDURAL HAEMATOMA [None]
  - TESTICULAR PAIN [None]
  - WHITE BLOOD CELL COUNT DECREASED [None]
